FAERS Safety Report 17912724 (Version 1)
Quarter: 2020Q2

REPORT INFORMATION
  Report Type: Spontaneous
  Country: US (occurrence: US)
  Receive Date: 20200618
  Receipt Date: 20200618
  Transmission Date: 20200714
  Serious: No
  Sender: FDA-Public Use
  Company Number: US-ITALFARMACO SPA-2086071

PATIENT
  Age: 76 Year
  Sex: Female

DRUGS (5)
  1. L-SERINE [Concomitant]
  2. TIGLUTIK [Suspect]
     Active Substance: RILUZOLE
     Indication: AMYOTROPHIC LATERAL SCLEROSIS
     Route: 048
  3. JEVITY (FAMOTIDINE) [Concomitant]
  4. PYRIDOSTIGMINE BROMIDE. [Concomitant]
     Active Substance: PYRIDOSTIGMINE BROMIDE
  5. FLUTICASONE. [Concomitant]
     Active Substance: FLUTICASONE

REACTIONS (1)
  - Diarrhoea [Not Recovered/Not Resolved]
